FAERS Safety Report 4394824-7 (Version None)
Quarter: 2004Q3

REPORT INFORMATION
  Report Type: 
  Country: None (occurrence: None)
  Receive Date: 20040706
  Receipt Date: 20040617
  Transmission Date: 20050211
  Serious: Yes (Other)
  Sender: FDA-Public Use
  Company Number: 8006529

PATIENT
  Age: 36 Year
  Sex: Female
  Weight: 57.2 kg

DRUGS (2)
  1. KEPPRA [Suspect]
     Indication: EPILEPSY
     Dosage: 1500 MG/D PO
     Route: 048
     Dates: start: 20010301
  2. VALPROATE SODIUM [Suspect]
     Indication: EPILEPSY
     Dosage: 2000 MG/D PO
     Route: 048
     Dates: start: 19991001, end: 20021101

REACTIONS (2)
  - DRUG INTERACTION [None]
  - WEIGHT INCREASED [None]
